FAERS Safety Report 7492047-6 (Version None)
Quarter: 2011Q2

REPORT INFORMATION
  Report Type: 
  Country: None (occurrence: None)
  Receive Date: 20110519
  Receipt Date: 20110505
  Transmission Date: 20111010
  Serious: Yes (Hospitalization, Other)
  Sender: FDA-Public Use
  Company Number: FI-JNJFOC-20110312612

PATIENT
  Sex: Male

DRUGS (4)
  1. REMICADE [Suspect]
     Indication: COLITIS ULCERATIVE
     Dosage: 100 MG EVERY 6-8 WEEKS
     Route: 042
     Dates: start: 20081124
  2. REMICADE [Suspect]
     Route: 042
     Dates: start: 20110314, end: 20110314
  3. PREDNISOLONE [Concomitant]
     Indication: COLITIS ULCERATIVE
     Dosage: 2.5-5 MG DAILY
     Route: 048
  4. ASACOL [Concomitant]
     Indication: COLITIS ULCERATIVE
     Route: 048

REACTIONS (3)
  - ACUTE HAEMORRHAGIC OEDEMA OF INFANCY [None]
  - HENOCH-SCHONLEIN PURPURA [None]
  - INFUSION RELATED REACTION [None]
